FAERS Safety Report 6421636-2 (Version None)
Quarter: 2009Q4

REPORT INFORMATION
  Report Type: 
  Country: None (occurrence: None)
  Receive Date: 20091030
  Receipt Date: 20091027
  Transmission Date: 20100525
  Serious: Yes (Hospitalization, Other)
  Sender: FDA-Public Use
  Company Number: US-PFIZER INC-2009268294

PATIENT
  Sex: Female

DRUGS (4)
  1. XANAX [Suspect]
     Indication: PANIC ATTACK
     Dosage: 2 MG, 4X/DAY
  2. XANAX [Suspect]
     Indication: SLEEP DISORDER
  3. CYMBALTA [Suspect]
     Dosage: UNK
  4. LUNESTA [Suspect]
     Dosage: UNK

REACTIONS (7)
  - DYSPNOEA [None]
  - FEELING DRUNK [None]
  - FIBROMYALGIA [None]
  - HYPERVENTILATION [None]
  - PANIC ATTACK [None]
  - POST-TRAUMATIC STRESS DISORDER [None]
  - SYNCOPE [None]
